FAERS Safety Report 16908874 (Version 1)
Quarter: 2019Q4

REPORT INFORMATION
  Report Type: Spontaneous
  Country: US (occurrence: US)
  Receive Date: 20190820
  Receipt Date: 20190820
  Transmission Date: 20200122
  Serious: No
  Sender: FDA-Public Use
  Company Number: None

PATIENT
  Age: 65 Year
  Sex: Female
  Weight: 81.65 kg

DRUGS (15)
  1. ATORVASTATIN CALCIUM. [Suspect]
     Active Substance: ATORVASTATIN CALCIUM
     Indication: BLOOD CHOLESTEROL INCREASED
     Dosage: ?          QUANTITY:1 DF DOSAGE FORM;?
     Route: 048
     Dates: start: 20190322, end: 20190726
  2. CELEBREX [Concomitant]
     Active Substance: CELECOXIB
  3. SYNTHROID [Concomitant]
     Active Substance: LEVOTHYROXINE SODIUM
  4. LOSARTAN. [Concomitant]
     Active Substance: LOSARTAN
  5. RESTASIS [Concomitant]
     Active Substance: CYCLOSPORINE
  6. VITAMIN D3 [Concomitant]
     Active Substance: CHOLECALCIFEROL
  7. LORATADINE. [Concomitant]
     Active Substance: LORATADINE
  8. OMPRAZOLE +MG [Concomitant]
  9. ATORVASTATIN CALCIUM. [Suspect]
     Active Substance: ATORVASTATIN CALCIUM
     Indication: BLOOD TRIGLYCERIDES INCREASED
     Dosage: ?          QUANTITY:1 DF DOSAGE FORM;?
     Route: 048
     Dates: start: 20190322, end: 20190726
  10. DOXYCYCLINE. [Concomitant]
     Active Substance: DOXYCYCLINE
  11. VITAMIN B12 [Concomitant]
     Active Substance: CYANOCOBALAMIN
  12. CYMBALTA [Concomitant]
     Active Substance: DULOXETINE HYDROCHLORIDE
  13. METHADONE [Concomitant]
     Active Substance: METHADONE HYDROCHLORIDE
  14. FISH OIL [Concomitant]
     Active Substance: FISH OIL
  15. GLUCOSAMINE CHONDRITION [Concomitant]

REACTIONS (3)
  - Memory impairment [None]
  - Bruxism [None]
  - Cognitive disorder [None]

NARRATIVE: CASE EVENT DATE: 20190430
